FAERS Safety Report 4299180-0 (Version None)
Quarter: 2004Q1

REPORT INFORMATION
  Report Type: 
  Country: None (occurrence: None)
  Receive Date: 20040217
  Receipt Date: 20040217
  Transmission Date: 20041129
  Serious: Yes (Hospitalization)
  Sender: FDA-Public Use
  Company Number: None

PATIENT
  Age: 77 Year
  Sex: Male
  Weight: 90.5 kg

DRUGS (6)
  1. DOCETAXEL AVENTIS PHARMACEUTICALS [Suspect]
     Indication: PROSTATE CANCER METASTATIC
     Dosage: 75MG/M2 INTRAVENOUS
     Route: 042
     Dates: start: 20040127, end: 20040127
  2. ZOCOR [Concomitant]
  3. ZOLADEX [Concomitant]
  4. COUMADIN [Concomitant]
  5. VITAMIN C [Concomitant]
  6. VITAMIN E [Concomitant]

REACTIONS (1)
  - FEBRILE NEUTROPENIA [None]
